FAERS Safety Report 16613694 (Version 1)
Quarter: 2019Q3

REPORT INFORMATION
  Report Type: Spontaneous
  Country: US (occurrence: US)
  Receive Date: 20190722
  Receipt Date: 20190722
  Transmission Date: 20191004
  Serious: No
  Sender: FDA-Public Use
  Company Number: None

PATIENT
  Age: 45 Year
  Sex: Female
  Weight: 65.25 kg

DRUGS (2)
  1. MULTIVITAMIN [Concomitant]
     Active Substance: VITAMINS
  2. CYMBALTA [Suspect]
     Active Substance: DULOXETINE HYDROCHLORIDE
     Indication: POST-TRAUMATIC STRESS DISORDER
     Dosage: ?          QUANTITY:1 CAPSULE(S);?
     Route: 048
     Dates: start: 20161101

REACTIONS (8)
  - Vertigo [None]
  - Mood altered [None]
  - Dizziness [None]
  - Dry mouth [None]
  - Anxiety [None]
  - Paraesthesia [None]
  - Weight increased [None]
  - Withdrawal syndrome [None]

NARRATIVE: CASE EVENT DATE: 20190720
